FAERS Safety Report 12704094 (Version 1)
Quarter: 2016Q3

REPORT INFORMATION
  Report Type: Spontaneous
  Country: FR (occurrence: FR)
  Receive Date: 20160831
  Receipt Date: 20160831
  Transmission Date: 20161109
  Serious: Yes (Other)
  Sender: FDA-Public Use
  Company Number: FR-JNJFOC-20160825047

PATIENT
  Age: 60 Year
  Sex: Male

DRUGS (7)
  1. XARELTO [Suspect]
     Active Substance: RIVAROXABAN
     Indication: ATRIAL FLUTTER
     Route: 048
     Dates: start: 201605, end: 20160802
  2. XARELTO [Suspect]
     Active Substance: RIVAROXABAN
     Indication: CEREBROVASCULAR ACCIDENT PROPHYLAXIS
     Route: 048
     Dates: start: 201605, end: 20160802
  3. COVERSYL [Concomitant]
     Active Substance: PERINDOPRIL
     Route: 065
  4. NAFTIDROFURYL [Concomitant]
     Active Substance: NAFRONYL
     Route: 065
  5. VELMETIA [Concomitant]
     Active Substance: METFORMIN\SITAGLIPTIN
     Route: 065
  6. TAHOR [Concomitant]
     Active Substance: ATORVASTATIN CALCIUM
     Route: 065
  7. BISOPROLOL HEMIFUMARATE [Concomitant]
     Active Substance: BISOPROLOL FUMARATE
     Route: 065

REACTIONS (2)
  - Asthenia [Recovering/Resolving]
  - Acute prerenal failure [Recovering/Resolving]

NARRATIVE: CASE EVENT DATE: 201607
